FAERS Safety Report 25340366 (Version 1)
Quarter: 2025Q2

REPORT INFORMATION
  Report Type: Spontaneous
  Country: US (occurrence: US)
  Receive Date: 20250521
  Receipt Date: 20250521
  Transmission Date: 20250716
  Serious: Yes (Life-Threatening, Hospitalization, Other)
  Sender: GLAND PHARMA LTD
  Company Number: US-GLANDPHARMA-US-2025GLNLIT01267

PATIENT
  Age: 63 Year
  Sex: Female

DRUGS (2)
  1. PANTOPRAZOLE SODIUM [Suspect]
     Active Substance: PANTOPRAZOLE SODIUM
     Indication: Gastric polyps
     Route: 065
  2. CARAFATE [Concomitant]
     Active Substance: SUCRALFATE
     Route: 065

REACTIONS (3)
  - Gastric polyps [Recovered/Resolved]
  - Anaemia [Recovered/Resolved]
  - Product use in unapproved indication [Unknown]
